FAERS Safety Report 8272333-2 (Version None)
Quarter: 2012Q2

REPORT INFORMATION
  Report Type: 
  Country: None (occurrence: None)
  Receive Date: 20120410
  Receipt Date: 20120329
  Transmission Date: 20120825
  Serious: No
  Sender: FDA-Public Use
  Company Number: US-B.I. PHARMACEUTICALS,INC./RIDGEFIELD-2012-BP-05978BP

PATIENT
  Sex: Male

DRUGS (2)
  1. AMITIZA [Concomitant]
     Indication: CONSTIPATION
     Route: 048
  2. MIRAPEX [Suspect]
     Indication: NEUROPATHY PERIPHERAL
     Dosage: 0.75 MG
     Route: 048
     Dates: start: 20111001

REACTIONS (1)
  - RESTLESS LEGS SYNDROME [None]
